FAERS Safety Report 9895075 (Version 1)
Quarter: 2014Q1

REPORT INFORMATION
  Report Type: Spontaneous
  Country: US (occurrence: US)
  Receive Date: 20140213
  Receipt Date: 20140213
  Transmission Date: 20141002
  Serious: No
  Sender: FDA-Public Use
  Company Number: US-BRISTOL-MYERS SQUIBB COMPANY-17481185

PATIENT
  Age: 64 Year
  Sex: Female
  Weight: 88.43 kg

DRUGS (12)
  1. ABATACEPT SUBQ INJECTION 125MG/ML [Suspect]
     Route: 058
  2. MACROBID [Concomitant]
     Dosage: CAPS
     Route: 048
  3. GABAPENTIN [Concomitant]
     Dosage: CAPS
     Route: 048
  4. DIOVAN [Concomitant]
     Dosage: TABS
     Route: 048
  5. VENTOLIN INHALER [Concomitant]
     Dosage: VENTOLIN HFA AER INHALER.
     Route: 045
  6. FLOVENT [Concomitant]
     Dosage: FLOVENT HFA AER INHALER.?1 DF: 110MCG.
     Route: 045
  7. CYMBALTA [Concomitant]
     Dosage: CAPS
     Route: 048
  8. NEXIUM [Concomitant]
     Dosage: CAPS
     Route: 048
  9. METOPROLOL [Concomitant]
     Dosage: ER TABS.
     Route: 048
  10. BABY ASPIRIN [Concomitant]
     Dosage: CHEWABLE
     Route: 048
  11. TYLENOL [Concomitant]
     Dosage: TYLENOL 8 HR TABS.
     Route: 048
  12. TRAMADOL HCL [Concomitant]
     Dosage: ER TABS.
     Route: 048

REACTIONS (1)
  - Urinary tract infection [Unknown]
